FAERS Safety Report 9375392 (Version 2)
Quarter: 2013Q3

REPORT INFORMATION
  Report Type: Spontaneous
  Country: FR (occurrence: FR)
  Receive Date: 20130618
  Receipt Date: 20130904
  Transmission Date: 20140515
  Serious: Yes (Hospitalization)
  Sender: FDA-Public Use
  Company Number: PHHY2013FR061376

PATIENT
  Age: 84 Year
  Sex: Male

DRUGS (19)
  1. FUROSEMIDE SANDOZ [Suspect]
     Indication: DIURETIC THERAPY
     Route: 048
  2. FUROSEMIDE SANDOZ [Suspect]
     Dosage: 40 MG, QD
     Route: 048
     Dates: start: 20130223
  3. FUROSEMIDE SANDOZ [Suspect]
     Dosage: 40 MG, QD
     Route: 048
     Dates: start: 20130320
  4. FUROSEMIDE SANDOZ [Suspect]
     Dosage: 40 MG, QD
     Route: 048
     Dates: start: 20130409
  5. FUROSEMIDE SANDOZ [Suspect]
     Dosage: 40 MG, QD
     Route: 048
     Dates: start: 20130503
  6. FUROSEMIDE SANDOZ [Suspect]
     Dosage: 20 MG, QD
     Route: 048
     Dates: start: 20130521
  7. BISOPROLOL [Concomitant]
  8. GLUCOR [Concomitant]
  9. ALLOPURINOL [Concomitant]
  10. TRINITRINE [Concomitant]
  11. EBIXA [Concomitant]
  12. DAFALGAN [Concomitant]
  13. COLCHICINE [Concomitant]
  14. IKOREL [Concomitant]
  15. CLOPIDOGREL [Concomitant]
  16. ALFUZOSINE [Concomitant]
  17. INEXIUM//ESOMEPRAZOLE MAGNESIUM [Concomitant]
  18. TAHOR [Concomitant]
  19. STAGID [Concomitant]

REACTIONS (3)
  - Balance disorder [Recovered/Resolved]
  - Gait disturbance [Recovered/Resolved]
  - Somnolence [Recovered/Resolved]
